FAERS Safety Report 13524431 (Version 1)
Quarter: 2017Q2

REPORT INFORMATION
  Report Type: Report from Study
  Country: TR (occurrence: TR)
  Receive Date: 20170508
  Receipt Date: 20170508
  Transmission Date: 20170830
  Serious: Yes (Hospitalization)
  Sender: FDA-Public Use
  Company Number: TR-BAYER-2017-082629

PATIENT
  Age: 58 Year
  Sex: Male

DRUGS (1)
  1. BETAFERON [Suspect]
     Active Substance: INTERFERON BETA-1B
     Indication: MULTIPLE SCLEROSIS
     Dosage: UNK UNK, QOD
     Route: 058
     Dates: start: 20170413, end: 20170428

REACTIONS (4)
  - Pyrexia [Recovering/Resolving]
  - Loss of consciousness [Recovering/Resolving]
  - Urinary incontinence [None]
  - Chills [Recovering/Resolving]

NARRATIVE: CASE EVENT DATE: 2017
